FAERS Safety Report 4710627-5 (Version None)
Quarter: 2005Q3

REPORT INFORMATION
  Report Type: 
  Country: None (occurrence: None)
  Receive Date: 20050707
  Receipt Date: 20050624
  Transmission Date: 20060218
  Serious: Yes (Other)
  Sender: FDA-Public Use
  Company Number: 2005094375

PATIENT
  Age: 51 Year
  Sex: Male

DRUGS (1)
  1. VIAGRA [Suspect]
     Dosage: 100 MG ORAL
     Route: 048

REACTIONS (12)
  - ALCOHOL USE [None]
  - BLOOD CHOLESTEROL INCREASED [None]
  - BLOOD GLUCOSE INCREASED [None]
  - DRUG EFFECT DECREASED [None]
  - EYE DISORDER [None]
  - EYE HAEMORRHAGE [None]
  - FEAR [None]
  - FEELING HOT [None]
  - GLAUCOMA [None]
  - INTENTIONAL MISUSE [None]
  - STRESS [None]
  - WEIGHT INCREASED [None]
